FAERS Safety Report 13448401 (Version 1)
Quarter: 2017Q2

REPORT INFORMATION
  Report Type: Spontaneous
  Country: US (occurrence: US)
  Receive Date: 20170417
  Receipt Date: 20170417
  Transmission Date: 20170830
  Serious: No
  Sender: FDA-Public Use
  Company Number: US-BIOGEN-2016BI00279352

PATIENT
  Sex: Male

DRUGS (1)
  1. TECFIDERA [Suspect]
     Active Substance: DIMETHYL FUMARATE
     Indication: MULTIPLE SCLEROSIS
     Route: 065
     Dates: start: 20160806, end: 20160831

REACTIONS (6)
  - Memory impairment [Not Recovered/Not Resolved]
  - Dysphonia [Unknown]
  - Speech disorder [Unknown]
  - Confusional state [Not Recovered/Not Resolved]
  - Cognitive disorder [Unknown]
  - Visual impairment [Not Recovered/Not Resolved]
